FAERS Safety Report 21547687 (Version 1)
Quarter: 2022Q4

REPORT INFORMATION
  Report Type: Spontaneous
  Country: US (occurrence: US)
  Receive Date: 20221103
  Receipt Date: 20221103
  Transmission Date: 20230112
  Serious: No
  Sender: FDA-Public Use
  Company Number: US-LUPIN PHARMACEUTICALS INC.-2022-12612

PATIENT
  Age: 6 Decade
  Sex: Female

DRUGS (13)
  1. DOXYCYCLINE [Suspect]
     Active Substance: DOXYCYCLINE
     Indication: Lyme disease
     Dosage: 200 MILLIGRAM, BID
     Route: 048
     Dates: start: 201505
  2. HYDROXYCHLOROQUINE SULFATE [Suspect]
     Active Substance: HYDROXYCHLOROQUINE SULFATE
     Indication: Lyme disease
     Dosage: 200 MILLIGRAM, BID
     Route: 048
  3. NYSTATIN [Suspect]
     Active Substance: NYSTATIN
     Indication: Lyme disease
     Dosage: 50000 INTERNATIONAL UNIT, BID
     Route: 065
  4. RIFAMPIN [Suspect]
     Active Substance: RIFAMPIN
     Indication: Lyme disease
     Dosage: 300 MILLIGRAM, BID
     Route: 048
  5. MINOCYCLINE [Suspect]
     Active Substance: MINOCYCLINE HYDROCHLORIDE
     Indication: Lyme disease
     Dosage: 100 MILLIGRAM, BID
     Route: 048
  6. DAPSONE [Suspect]
     Active Substance: DAPSONE
     Indication: Lyme disease
     Dosage: 50 MILLIGRAM, QOD
     Route: 048
  7. DAPSONE [Suspect]
     Active Substance: DAPSONE
     Dosage: 25 MILLIGRAM, BID
     Route: 048
  8. DAPSONE [Suspect]
     Active Substance: DAPSONE
     Dosage: 100 MILLIGRAM, QD
     Route: 048
  9. DAPSONE [Suspect]
     Active Substance: DAPSONE
     Dosage: 200 MILLIGRAM, BID
     Route: 048
  10. MALARONE [Concomitant]
     Active Substance: ATOVAQUONE\PROGUANIL HYDROCHLORIDE
     Indication: Lyme disease
     Dosage: 2 DOSAGE FORM, BID
     Route: 048
     Dates: start: 201505
  11. HERBALS [Concomitant]
     Active Substance: HERBALS
     Indication: Lyme disease
     Dosage: 30 DROP, BID
     Route: 065
     Dates: start: 201505
  12. LEUCOVORIN [Concomitant]
     Active Substance: LEUCOVORIN
     Indication: Lyme disease
     Dosage: 25 MILLIGRAM, QD
     Route: 065
  13. LEVOMEFOLIC ACID [Concomitant]
     Active Substance: LEVOMEFOLIC ACID
     Indication: Lyme disease
     Dosage: 15 MILLIGRAM, QD
     Route: 065

REACTIONS (3)
  - Jarisch-Herxheimer reaction [Unknown]
  - Nausea [Unknown]
  - Vomiting [Unknown]

NARRATIVE: CASE EVENT DATE: 20150101
